FAERS Safety Report 6342142-X (Version None)
Quarter: 2009Q3

REPORT INFORMATION
  Report Type: 
  Country: None (occurrence: None)
  Receive Date: 20090903
  Receipt Date: 20090903
  Transmission Date: 20100115
  Serious: Yes (Hospitalization, Disabling, Other)
  Sender: FDA-Public Use
  Company Number: None

PATIENT
  Sex: Male
  Weight: 91.6266 kg

DRUGS (2)
  1. PREDNISONE TAB [Suspect]
     Indication: RENAL DISORDER
     Dosage: 80MG ONE TIME DAILY
     Dates: start: 20090814
  2. PREDNISONE TAB [Suspect]
     Indication: RENAL DISORDER
     Dosage: 80MG ONE TIME DAILY
     Dates: start: 20090827

REACTIONS (3)
  - MOOD SWINGS [None]
  - OEDEMA PERIPHERAL [None]
  - PURULENCE [None]
